FAERS Safety Report 6406641-4 (Version None)
Quarter: 2009Q4

REPORT INFORMATION
  Report Type: 
  Country: None (occurrence: None)
  Receive Date: 20091020
  Receipt Date: 20091015
  Transmission Date: 20100525
  Serious: Yes (Other)
  Sender: FDA-Public Use
  Company Number: US-RB-021446-09

PATIENT
  Sex: Female

DRUGS (2)
  1. SUBOXONE [Suspect]
     Route: 060
     Dates: start: 20070101
  2. WELLBUTRIN [Suspect]
     Indication: DEPRESSION
     Dosage: DOSING INFORMATION UNKNOWN
     Route: 065
     Dates: end: 20090801

REACTIONS (1)
  - CONVULSION [None]
